FAERS Safety Report 9447326 (Version 1)
Quarter: 2013Q3

REPORT INFORMATION
  Report Type: Spontaneous
  Country: US (occurrence: US)
  Receive Date: 20130808
  Receipt Date: 20130808
  Transmission Date: 20140515
  Serious: No
  Sender: FDA-Public Use
  Company Number: US-BIOGENIDEC-2013BI072299

PATIENT
  Sex: Female

DRUGS (2)
  1. AVONEX [Suspect]
     Indication: MULTIPLE SCLEROSIS
     Route: 030
     Dates: start: 20100407, end: 20120809
  2. REBIF [Concomitant]
     Indication: PRODUCT USED FOR UNKNOWN INDICATION

REACTIONS (16)
  - Abdominal pain upper [Not Recovered/Not Resolved]
  - Drug administered at inappropriate site [Unknown]
  - Injection site pruritus [Unknown]
  - Sensory disturbance [Not Recovered/Not Resolved]
  - Induration [Recovered/Resolved]
  - Contusion [Recovered/Resolved]
  - Skin mass [Unknown]
  - Limb deformity [Not Recovered/Not Resolved]
  - Muscle atrophy [Not Recovered/Not Resolved]
  - Atrophy [Not Recovered/Not Resolved]
  - Cellulitis [Not Recovered/Not Resolved]
  - Muscular weakness [Not Recovered/Not Resolved]
  - Multiple sclerosis relapse [Unknown]
  - Influenza like illness [Recovered/Resolved]
  - Injection site erythema [Unknown]
  - Injection site pain [Unknown]
